FAERS Safety Report 8671953 (Version 6)
Quarter: 2013Q4

REPORT INFORMATION
  Report Type: Spontaneous
  Country: US (occurrence: US)
  Receive Date: 20120718
  Receipt Date: 20131129
  Transmission Date: 20140711
  Serious: Yes (Hospitalization, Disabling, Other)
  Sender: FDA-Public Use
  Company Number: CHPA2012US014712

PATIENT
  Age: 58 Year
  Sex: Female

DRUGS (6)
  1. EXCEDRIN MIGRAINE [Suspect]
     Indication: HEAT STROKE
     Dosage: 2 DF, UNK
     Route: 048
  2. EXCEDRIN ES BACK + BODY [Suspect]
     Indication: HEAT STROKE
     Dosage: 2 DF, UNK
     Route: 048
  3. EXCEDRIN ES BACK + BODY [Suspect]
     Indication: PROCEDURAL PAIN
  4. EXCEDRIN ES BACK + BODY [Suspect]
     Indication: OFF LABEL USE
  5. ALLERGY MEDICATION [Concomitant]
     Dosage: UNK, UNK
  6. SALONPAS [Concomitant]
     Dosage: UNK, UNK

REACTIONS (26)
  - Disability [Unknown]
  - Migraine [Recovered/Resolved]
  - Dizziness [Recovered/Resolved]
  - Torticollis [Not Recovered/Not Resolved]
  - Oromandibular dystonia [Unknown]
  - Spinal deformity [Not Recovered/Not Resolved]
  - Head injury [Unknown]
  - Blepharospasm [Unknown]
  - Muscle spasms [Unknown]
  - Road traffic accident [Recovered/Resolved]
  - Pain [Unknown]
  - Blood pressure increased [Unknown]
  - Neck injury [Not Recovered/Not Resolved]
  - Myelopathy [Not Recovered/Not Resolved]
  - Malaise [Unknown]
  - Paradoxical drug reaction [Unknown]
  - Somnolence [Unknown]
  - Mood altered [Unknown]
  - Psychomotor hyperactivity [Unknown]
  - Nerve injury [Not Recovered/Not Resolved]
  - Dyspnoea [Not Recovered/Not Resolved]
  - Dysstasia [Not Recovered/Not Resolved]
  - Serum serotonin increased [Unknown]
  - Off label use [Unknown]
  - Therapeutic response unexpected [Unknown]
  - Expired drug administered [Unknown]
